FAERS Safety Report 5348335-2 (Version None)
Quarter: 2007Q2

REPORT INFORMATION
  Report Type: 
  Country: None (occurrence: None)
  Receive Date: 20070606
  Receipt Date: 20070528
  Transmission Date: 20071010
  Serious: Yes (Other)
  Sender: FDA-Public Use
  Company Number: JP-MERCK-0705USA03756

PATIENT
  Age: 75 Year
  Sex: Female
  Weight: 53 kg

DRUGS (9)
  1. HYZAAR [Suspect]
     Indication: HYPERTENSION
     Route: 048
     Dates: start: 20061216, end: 20070227
  2. HYZAAR [Suspect]
     Route: 048
     Dates: start: 20070417, end: 20070428
  3. DAONIL [Concomitant]
     Indication: DIABETES MELLITUS
     Route: 048
     Dates: start: 20011119, end: 20070302
  4. TANATRIL [Concomitant]
     Indication: HYPERTENSION
     Route: 048
     Dates: start: 20011119
  5. ACINON [Concomitant]
     Indication: HYPERCHLORHYDRIA
     Route: 048
     Dates: start: 20011119
  6. BASEN [Concomitant]
     Indication: DIABETES MELLITUS
     Route: 048
     Dates: start: 20011119
  7. LIPITOR [Concomitant]
     Indication: HYPERLIPIDAEMIA
     Route: 048
     Dates: start: 20011119
  8. THEO-DUR [Concomitant]
     Indication: ASTHMA
     Route: 048
     Dates: start: 20060721
  9. PREDONINE [Concomitant]
     Indication: ASTHMA
     Route: 048
     Dates: start: 20060721

REACTIONS (7)
  - ASTHENIA [None]
  - COLD SWEAT [None]
  - DECREASED APPETITE [None]
  - DYSARTHRIA [None]
  - NAUSEA [None]
  - NIGHT SWEATS [None]
  - VOMITING [None]
